FAERS Safety Report 8782500 (Version 1)
Quarter: 2012Q4

REPORT INFORMATION
  Report Type: 
  Country: US (occurrence: US)
  Receive Date: 20120913
  Receipt Date: 20120913
  Transmission Date: 20130627
  Serious: No
  Sender: FDA-Public Use
  Company Number: US-ASTRAZENECA-2012SE60166

PATIENT
  Age: 58 Year
  Sex: Female

DRUGS (6)
  1. LISINOPRIL [Suspect]
     Route: 048
  2. SEROQUEL [Suspect]
     Route: 048
  3. SEROQUEL [Suspect]
     Route: 048
  4. CLONDINE [Concomitant]
  5. SIMVASTATIN [Concomitant]
  6. SUMPTIRPITAN SUCCINATE [Concomitant]

REACTIONS (1)
  - Limb discomfort [Unknown]
